FAERS Safety Report 7280046-9 (Version None)
Quarter: 2011Q1

REPORT INFORMATION
  Report Type: 
  Country: None (occurrence: None)
  Receive Date: 20110126
  Receipt Date: 20110118
  Transmission Date: 20110831
  Serious: Yes (Hospitalization, Other)
  Sender: FDA-Public Use
  Company Number: 20119959

PATIENT
  Sex: Female

DRUGS (1)
  1. LIORESAL [Suspect]
     Indication: MUSCLE SPASTICITY
     Dosage: DALY, INTRATHECAL
     Route: 037

REACTIONS (9)
  - DEVICE MATERIAL ISSUE [None]
  - DEVICE CONNECTION ISSUE [None]
  - MUSCLE SPASTICITY [None]
  - FALL [None]
  - DEVICE INFUSION ISSUE [None]
  - HIP FRACTURE [None]
  - DRUG WITHDRAWAL SYNDROME [None]
  - FEMUR FRACTURE [None]
  - DEVICE MALFUNCTION [None]
